FAERS Safety Report 8841954 (Version 1)
Quarter: 2012Q4

REPORT INFORMATION
  Report Type: Spontaneous
  Country: US (occurrence: None)
  Receive Date: 20121015
  Receipt Date: 20121015
  Transmission Date: 20130627
  Serious: Yes (Life-Threatening, Hospitalization, Other)
  Sender: FDA-Public Use
  Company Number: None

PATIENT
  Age: 67 Year
  Sex: Male
  Weight: 100.25 kg

DRUGS (3)
  1. PRAVASTATIN [Suspect]
     Indication: CHOLESTEROL
     Route: 048
  2. PAIN KILLERS [Concomitant]
  3. HYDROCODONE [Concomitant]

REACTIONS (5)
  - Arthralgia [None]
  - Hot flush [None]
  - Burning sensation [None]
  - Gait disturbance [None]
  - Muscle spasms [None]
